FAERS Safety Report 8870443 (Version 1)
Quarter: 2012Q4

REPORT INFORMATION
  Report Type: 
  Country: US (occurrence: US)
  Receive Date: 20121026
  Receipt Date: 20121026
  Transmission Date: 20130627
  Serious: No
  Sender: FDA-Public Use
  Company Number: US-AMGEN-USASP2012043571

PATIENT
  Age: 59 Year
  Sex: Female
  Weight: 106 kg

DRUGS (19)
  1. ENBREL [Suspect]
     Indication: PRODUCT USED FOR UNKNOWN INDICATION
     Dosage: 50 mg, qwk
     Route: 058
  2. LASIX                              /00032601/ [Concomitant]
     Dosage: 20 mg, UNK
  3. ZYRTEC ALLERGY [Concomitant]
     Dosage: 10 mg, UNK
  4. ROPINIROLE [Concomitant]
     Dosage: 0.5 mg, UNK
  5. PREDNISONE [Concomitant]
     Dosage: 1 mg, UNK
  6. LYRICA [Concomitant]
     Dosage: 300 mg, UNK
  7. LEFLUNOMIDE [Concomitant]
     Dosage: 20 mg, UNK
  8. LISINOPRIL AND HYDROCHLORTIAZIDE [Concomitant]
     Dosage: 20-12.5
  9. METFORMIN [Concomitant]
     Dosage: 500 mg, UNK
  10. OMEPRAZOLE [Concomitant]
     Dosage: 20 mg, UNK
  11. ALLOPURINOL [Concomitant]
     Dosage: 100 mg, UNK
  12. MULTIVITAMIN                       /00831701/ [Concomitant]
     Dosage: UNK
  13. CALCIUM [Concomitant]
     Dosage: 500 unit, UNK
  14. VITAMIN C                          /00008001/ [Concomitant]
     Dosage: 500 mg, UNK
  15. GLUCOSAMINE [Concomitant]
     Dosage: 750 mg, UNK
  16. FOLIC ACID [Concomitant]
     Dosage: UNK
  17. IRON [Concomitant]
     Dosage: 50 mg, UNK
  18. VITAMIN B12                        /00056201/ [Concomitant]
     Dosage: 1000 mcg, UNK
  19. POTASSIUM [Concomitant]
     Dosage: UNK

REACTIONS (1)
  - Blood blister [Unknown]
